FAERS Safety Report 14298069 (Version 3)
Quarter: 2018Q1

REPORT INFORMATION
  Report Type: Report from Study
  Country: US (occurrence: US)
  Receive Date: 20171218
  Receipt Date: 20180125
  Transmission Date: 20180509
  Serious: Yes (Other)
  Sender: FDA-Public Use
  Company Number: US-GILEAD-2017-0310671

PATIENT

DRUGS (11)
  1. AMLODIPINE [Concomitant]
     Active Substance: AMLODIPINE BESYLATE
  2. METOPROLOL SUCCINATE. [Concomitant]
     Active Substance: METOPROLOL SUCCINATE
  3. BENZONATATE. [Concomitant]
     Active Substance: BENZONATATE
  4. TEMAZEPAM. [Concomitant]
     Active Substance: TEMAZEPAM
  5. BISMUTH SUBSALICYLATE. [Concomitant]
     Active Substance: BISMUTH SUBSALICYLATE
  6. SOFOSBUVIR W/VELPATASVIR [Suspect]
     Active Substance: SOFOSBUVIR\VELPATASVIR
     Indication: CHRONIC HEPATITIS C
     Route: 065
  7. FERROUS GLUCONATE [Concomitant]
     Active Substance: FERROUS GLUCONATE
  8. CETIRIZINE [Concomitant]
     Active Substance: CETIRIZINE HYDROCHLORIDE
  9. ONDASETRON                         /00955301/ [Concomitant]
     Active Substance: ONDANSETRON
  10. LOPERAMIDE [Concomitant]
     Active Substance: LOPERAMIDE
  11. CLOPIDOGREL [Concomitant]
     Active Substance: CLOPIDOGREL BISULFATE

REACTIONS (2)
  - Nausea [Unknown]
  - Renal impairment [Unknown]
